FAERS Safety Report 10084553 (Version 2)
Quarter: 2014Q2

REPORT INFORMATION
  Report Type: Report from Study
  Country: PL (occurrence: PL)
  Receive Date: 20140417
  Receipt Date: 20140417
  Transmission Date: 20141212
  Serious: Yes (Hospitalization, Other)
  Sender: FDA-Public Use
  Company Number: PL-ROCHE-1372339

PATIENT
  Age: 56 Year
  Sex: Female
  Weight: 64 kg

DRUGS (10)
  1. PEGASYS [Suspect]
     Indication: HEPATITIS C
     Route: 065
     Dates: start: 20101015, end: 20110916
  2. PEGASYS [Suspect]
     Route: 065
     Dates: start: 20130321, end: 20140219
  3. COPEGUS [Suspect]
     Indication: HEPATITIS C
     Route: 065
     Dates: start: 20101015, end: 20110916
  4. COPEGUS [Suspect]
     Route: 065
  5. COPEGUS [Suspect]
     Dosage: DOSE REDUCED DUE TO ANEMIA
     Route: 065
  6. COPEGUS [Suspect]
     Dosage: DOSE REDUCED DUE TO ANEMIA
     Route: 065
  7. VICTRELIS [Suspect]
     Indication: HEPATITIS C
     Route: 065
     Dates: start: 20130321
  8. ACCUPRO [Concomitant]
     Indication: HYPERTENSION
     Route: 048
  9. SULPIRIDE [Concomitant]
     Indication: NEUROSIS
     Route: 048
  10. PRAMOLAN [Concomitant]
     Indication: GASTRIC DISORDER
     Route: 048

REACTIONS (17)
  - Anaemia [Recovered/Resolved]
  - Irritable bowel syndrome [Recovered/Resolved]
  - Swelling [Unknown]
  - Gallbladder disorder [Unknown]
  - Diarrhoea [Unknown]
  - Cachexia [Unknown]
  - Weight decreased [Recovered/Resolved]
  - Leukopenia [Unknown]
  - Neutropenia [Unknown]
  - Depression [Unknown]
  - Hypothyroidism [Unknown]
  - Neurosis [Unknown]
  - Abdominal pain [Unknown]
  - Bladder spasm [Unknown]
  - Rectal tenesmus [Unknown]
  - Nausea [Unknown]
  - Lipase increased [Unknown]
